FAERS Safety Report 5763414-3 (Version None)
Quarter: 2008Q2

REPORT INFORMATION
  Report Type: 
  Country: None (occurrence: None)
  Receive Date: 20080604
  Receipt Date: 20080604
  Transmission Date: 20081010
  Serious: Yes (Other)
  Sender: FDA-Public Use
  Company Number: None

PATIENT
  Sex: Female
  Weight: 68.0396 kg

DRUGS (7)
  1. PLIAGLIS (LIDOCAINE) (TETRACAINE) CREAM 7%/7% [Suspect]
     Indication: LOCAL ANAESTHESIA
     Dosage: (1 DF TOPICAL)
     Route: 061
     Dates: start: 20080409, end: 20080409
  2. PRAVASTATIN [Concomitant]
  3. ALLEGRA [Concomitant]
  4. VALACYCLOVIR [Concomitant]
  5. MULTIVIITAMINS, PLAIN [Concomitant]
  6. ASCORBIC ACID [Concomitant]
  7. E-VITAMIN [Concomitant]

REACTIONS (8)
  - ANXIETY [None]
  - COMPLICATION OF DEVICE REMOVAL [None]
  - EYE PAIN [None]
  - HYPERTENSION [None]
  - NAUSEA [None]
  - ORAL PAIN [None]
  - PROCEDURAL HEADACHE [None]
  - RHINALGIA [None]
